FAERS Safety Report 11361644 (Version 1)
Quarter: 2015Q3

REPORT INFORMATION
  Report Type: Spontaneous
  Country: US (occurrence: US)
  Receive Date: 20150810
  Receipt Date: 20150810
  Transmission Date: 20151125
  Serious: Yes (Other)
  Sender: FDA-Public Use
  Company Number: US-AMGEN-USASP2015079582

PATIENT
  Age: 55 Year
  Sex: Female

DRUGS (4)
  1. CORTISONE [Suspect]
     Active Substance: CORTISONE\HYDROCORTISONE
     Indication: RHEUMATOID ARTHRITIS
     Dosage: UNK
     Route: 065
  2. ENBREL [Suspect]
     Active Substance: ETANERCEPT
     Indication: RHEUMATOID ARTHRITIS
     Dosage: 50 MG, QWK
     Route: 065
     Dates: start: 2013
  3. CORTISONE [Suspect]
     Active Substance: CORTISONE\HYDROCORTISONE
     Indication: JOINT SWELLING
  4. CORTISONE [Suspect]
     Active Substance: CORTISONE\HYDROCORTISONE
     Indication: ARTHRALGIA

REACTIONS (10)
  - Pain [Unknown]
  - Joint swelling [Unknown]
  - Arthralgia [Unknown]
  - Swelling [Recovering/Resolving]
  - Rheumatoid arthritis [Unknown]
  - Ankle deformity [Unknown]
  - Asthenia [Unknown]
  - Walking aid user [Unknown]
  - Nasopharyngitis [Not Recovered/Not Resolved]
  - Injection site pain [Unknown]

NARRATIVE: CASE EVENT DATE: 2014
